FAERS Safety Report 9713194 (Version 1)
Quarter: 2013Q4

REPORT INFORMATION
  Report Type: Spontaneous
  Country: US (occurrence: US)
  Receive Date: 20131126
  Receipt Date: 20131126
  Transmission Date: 20140711
  Serious: No
  Sender: FDA-Public Use
  Company Number: US-ASTELLAS-2013US009371

PATIENT
  Age: 75 Year
  Sex: Male

DRUGS (1)
  1. LEXISCAN [Suspect]
     Indication: IMAGING PROCEDURE
     Dosage: UNK
     Route: 042
     Dates: start: 201308

REACTIONS (1)
  - Syncope [Recovered/Resolved]
